FAERS Safety Report 21541410 (Version 4)
Quarter: 2022Q4

REPORT INFORMATION
  Report Type: Report from Study
  Country: NL (occurrence: NL)
  Receive Date: 20221102
  Receipt Date: 20221228
  Transmission Date: 20230112
  Serious: Yes (Hospitalization)
  Sender: FDA-Public Use
  Company Number: NL-Clinigen Group PLC/ Clinigen Healthcare Ltd-NL-CLGN-22-00483

PATIENT
  Age: 63 Year
  Sex: Male

DRUGS (4)
  1. PROLEUKIN [Suspect]
     Active Substance: ALDESLEUKIN
     Indication: Non-small cell lung cancer metastatic
     Dates: start: 20221004, end: 20221005
  2. CYCLOPHOSPHAMIDE [Suspect]
     Active Substance: CYCLOPHOSPHAMIDE
     Indication: Non-small cell lung cancer metastatic
     Dates: start: 20220929, end: 20220930
  3. FLUDARABINE [Suspect]
     Active Substance: FLUDARABINE PHOSPHATE
     Indication: Non-small cell lung cancer metastatic
     Dates: start: 20220929, end: 20221003
  4. LIFILEUCEL [Suspect]
     Active Substance: LIFILEUCEL
     Indication: Non-small cell lung cancer metastatic
     Dates: start: 20221004, end: 20221004

REACTIONS (1)
  - Cardiac failure [Recovered/Resolved]

NARRATIVE: CASE EVENT DATE: 20221021
